FAERS Safety Report 9888826 (Version 1)
Quarter: 2014Q1

REPORT INFORMATION
  Report Type: Spontaneous
  Country: US (occurrence: US)
  Receive Date: 20140211
  Receipt Date: 20140211
  Transmission Date: 20141002
  Serious: Yes (Hospitalization)
  Sender: FDA-Public Use
  Company Number: US-ASTRAZENECA-2014SE08070

PATIENT
  Age: 83 Year
  Sex: Female
  Weight: 47.6 kg

DRUGS (17)
  1. SYMBICORT [Suspect]
     Indication: CHRONIC OBSTRUCTIVE PULMONARY DISEASE
     Dosage: 160/4.5 MCG, 2 PUFFS BID
     Route: 055
     Dates: start: 2012, end: 20140131
  2. SYMBICORT [Suspect]
     Indication: RESPIRATORY DISORDER
     Dosage: 160/4.5 MCG, 2 PUFFS BID
     Route: 055
     Dates: start: 2012, end: 20140131
  3. BUDESONIDE [Suspect]
     Dosage: 0.5 MG/2 ML SUSPENSION
     Route: 055
  4. BUDESONIDE [Suspect]
     Dosage: FREQUENCY REDUCED TO TWICE ONLY
     Route: 055
  5. OMEPRAZOLE [Suspect]
     Indication: GASTRITIS PROPHYLAXIS
     Route: 048
  6. METHOTREXATE [Suspect]
     Route: 065
     Dates: end: 2012
  7. GABAPENTIN [Suspect]
     Indication: HERPES ZOSTER
     Route: 048
  8. GABAPENTIN [Suspect]
     Indication: HERPES ZOSTER
     Dosage: REDUCED TO ONE TABLET DAILY
     Route: 048
  9. PREDNISONE [Suspect]
     Route: 048
  10. PREDNISONE [Suspect]
     Dosage: EVERY OTHER DAY UNLESS THE PATIENT STARTS COUGHING
     Route: 048
  11. ALBUTEROL [Suspect]
     Dosage: 0.083
     Route: 055
  12. ALBUTEROL [Suspect]
     Dosage: FREQUENCY REDUCED TO TWICE ONLY
     Route: 055
  13. NORVASC/AMLODOPINE [Concomitant]
     Route: 048
     Dates: end: 20131230
  14. UNSPECIFIED VITAMINS [Concomitant]
     Route: 048
  15. MEGACE [Concomitant]
     Indication: APPETITE DISORDER
     Route: 048
  16. ARICEPT [Concomitant]
     Route: 048
     Dates: start: 20131230
  17. POTASSIUM CHLORIDE [Concomitant]
     Route: 048

REACTIONS (10)
  - Dyspnoea [Unknown]
  - Cough [Unknown]
  - White blood cell count decreased [Unknown]
  - Disorientation [Not Recovered/Not Resolved]
  - Local swelling [Recovered/Resolved]
  - Anaemia [Unknown]
  - Swelling face [Unknown]
  - Circumstance or information capable of leading to medication error [Unknown]
  - Off label use [Not Recovered/Not Resolved]
  - Drug dose omission [Not Recovered/Not Resolved]
